FAERS Safety Report 5002837-7 (Version None)
Quarter: 2006Q2

REPORT INFORMATION
  Report Type: 
  Country: None (occurrence: None)
  Receive Date: 20060512
  Receipt Date: 20060420
  Transmission Date: 20061013
  Serious: Yes (Hospitalization)
  Sender: FDA-Public Use
  Company Number: US200604003254

PATIENT
  Age: 84 Year
  Sex: Female

DRUGS (26)
  1. ERBITUX [Suspect]
     Indication: NON-SMALL CELL LUNG CANCER
     Dosage: 362 U, INTRAVENOUS
     Route: 042
     Dates: start: 20050517, end: 20060315
  2. CARBOPLATIN [Suspect]
     Indication: NON-SMALL CELL LUNG CANCER
  3. GEMCITABINE HYDROCHLORIDE (GEMCITABINE HYDROCHLORIDE) [Suspect]
  4. CHOLESTYRAMINE RESIN (COLESTYRAMINE) [Concomitant]
  5. GENTEAL (HYPROMELLOSE) [Concomitant]
  6. HYDROCORTISONE [Concomitant]
  7. HYZAAR [Concomitant]
  8. ATROVENT [Concomitant]
  9. PULMICORT [Concomitant]
  10. LASIX [Concomitant]
  11. LORAZEPAM [Concomitant]
  12. GUAIFENESIN [Concomitant]
  13. MYCELEX [Concomitant]
  14. NOVOLIN 70/30 [Concomitant]
  15. POTASSIUM [Concomitant]
  16. PREDNISONE TAB [Concomitant]
  17. SINGULAIR [Concomitant]
  18. SYNTHROID [Concomitant]
  19. ZANTAC [Concomitant]
  20. ZOFRAN [Concomitant]
  21. ZOLOFT [Concomitant]
  22. SLOW-MAG (MAGNESIUM CHLORIDE ANHYDROUS) [Concomitant]
  23. SPIRIVA [Concomitant]
  24. ACIPHEX [Concomitant]
  25. AVANDIA [Concomitant]
  26. SODIUM CHLORIDE [Concomitant]

REACTIONS (7)
  - BACTERIAL INFECTION [None]
  - BLOOD CALCIUM DECREASED [None]
  - CELLULITIS [None]
  - DIARRHOEA [None]
  - DIVERTICULITIS [None]
  - HYPOMAGNESAEMIA [None]
  - VOMITING [None]
